FAERS Safety Report 7968517-0 (Version None)
Quarter: 2011Q4

REPORT INFORMATION
  Report Type: 
  Country: None (occurrence: None)
  Receive Date: 20111207
  Receipt Date: 20111125
  Transmission Date: 20120403
  Serious: No
  Sender: FDA-Public Use
  Company Number: CA-006449

PATIENT
  Sex: Male

DRUGS (8)
  1. PANTOLOC /01263202/ [Concomitant]
  2. FIRMAGON [Suspect]
     Indication: PROSTATE CANCER
     Dosage: (240 MG 1X SUBCUTANEOUS), (80 MG 1X/MONTH SUBCUTANEOUS)
     Route: 058
     Dates: start: 20110705, end: 20110705
  3. FIRMAGON [Suspect]
     Indication: PROSTATE CANCER
     Dosage: (240 MG 1X SUBCUTANEOUS), (80 MG 1X/MONTH SUBCUTANEOUS)
     Route: 058
     Dates: start: 20110803
  4. LOPRESOR /00376902/ [Concomitant]
  5. ACETAMINOPHEN [Concomitant]
  6. CLOPIDOGREL [Concomitant]
  7. ASPIRIN [Concomitant]
  8. BICALUTAMIDE [Concomitant]

REACTIONS (14)
  - FATIGUE [None]
  - BREAST PAIN [None]
  - HOT FLUSH [None]
  - DIZZINESS [None]
  - INJECTION SITE ERYTHEMA [None]
  - HEADACHE [None]
  - BACK PAIN [None]
  - ABDOMINAL PAIN [None]
  - INJECTION SITE PAIN [None]
  - POLLAKIURIA [None]
  - TESTICULAR ATROPHY [None]
  - BREAST SWELLING [None]
  - MICTURITION URGENCY [None]
  - INJECTION SITE NODULE [None]
